FAERS Safety Report 25450757 (Version 3)
Quarter: 2025Q3

REPORT INFORMATION
  Report Type: Spontaneous
  Country: US (occurrence: US)
  Receive Date: 20250618
  Receipt Date: 20250919
  Transmission Date: 20251020
  Serious: Yes (Hospitalization)
  Sender: CATALYST PHARMA
  Company Number: US-CATALYST PHARMACEUTICALS, INC-US-CATA-25-00846

PATIENT
  Sex: Female
  Weight: 78.912 kg

DRUGS (35)
  1. FIRDAPSE [Suspect]
     Active Substance: AMIFAMPRIDINE PHOSPHATE
     Indication: Myasthenic syndrome
     Dosage: ONE HALF TABLET THREE TIMES PER DAY FOR 4 DAYS, THEN INCREASED BY ONE HALF TABLET EVERY FOUR DAYS, U
     Route: 048
     Dates: start: 20230202, end: 2023
  2. FIRDAPSE [Suspect]
     Active Substance: AMIFAMPRIDINE PHOSPHATE
     Dosage: 100 MG; TWO 10 MG TABLETS 5 TIMES DAILY
     Route: 048
     Dates: start: 202304
  3. FIRDAPSE [Suspect]
     Active Substance: AMIFAMPRIDINE PHOSPHATE
     Dosage: 10 TABLETS TOTAL DAILY IN DIVIDED DOSES
     Route: 048
     Dates: start: 20240614
  4. ALENDRONATE SODIUM [Concomitant]
     Active Substance: ALENDRONATE SODIUM
     Indication: Osteoporosis
     Dosage: 70 MG WEEKLY
     Route: 048
  5. ALEGRA [Concomitant]
     Indication: Rhinitis allergic
     Dosage: 180 MG DAILY
     Route: 048
  6. ASPIRIN [Concomitant]
     Active Substance: ASPIRIN
     Indication: Cardiovascular event prophylaxis
     Dosage: 81 MG DAILY
     Route: 048
  7. ATORVASTATIN [Concomitant]
     Active Substance: ATORVASTATIN
     Indication: Blood cholesterol increased
     Dosage: 40 MG DAILY
     Route: 048
  8. CEFUROXIME [Concomitant]
     Active Substance: CEFUROXIME
     Indication: Staphylococcal infection
     Dosage: 250 MG DAILY
     Route: 048
  9. CYCLOBENZAPRINE [Concomitant]
     Active Substance: CYCLOBENZAPRINE
     Indication: Muscle spasms
     Dosage: 5 MG DAILY
     Route: 048
  10. LEVOTHYROXINE [Concomitant]
     Active Substance: LEVOTHYROXINE
     Indication: Hypothyroidism
     Dosage: 75 MCG DAILY
     Route: 048
  11. MELOXICAM [Concomitant]
     Active Substance: MELOXICAM
     Indication: Pain
     Dosage: 15 MG DAILY
     Route: 048
  12. MESTINON [Concomitant]
     Active Substance: PYRIDOSTIGMINE BROMIDE
     Indication: Myasthenic syndrome
     Dosage: 60 MG EVERY 8 HOURS
     Route: 048
  13. MESTINON [Concomitant]
     Active Substance: PYRIDOSTIGMINE BROMIDE
     Dosage: 30 MG THREE TIMES A DAY;
     Route: 065
  14. MOTEGRITY [Concomitant]
     Active Substance: PRUCALOPRIDE SUCCINATE
     Indication: Constipation
     Dosage: 2 MG DAILY
     Route: 048
  15. PROLIA [Concomitant]
     Active Substance: DENOSUMAB
     Indication: Osteoporosis
     Route: 058
  16. QNASL [Concomitant]
     Active Substance: BECLOMETHASONE DIPROPIONATE
     Indication: Allergic sinusitis
     Dosage: 2 SPRAYS DAILY
     Route: 045
  17. TRULANCE [Concomitant]
     Active Substance: PLECANATIDE
     Indication: Constipation
     Dosage: 3 MG EVERY WEEK
     Route: 048
  18. VENTOLIN [Concomitant]
     Active Substance: ALBUTEROL SULFATE
     Indication: Dyspnoea
     Route: 055
  19. VITAMIN D3 [Concomitant]
     Active Substance: CHOLECALCIFEROL
     Indication: Hypovitaminosis
     Dosage: DAILY
     Route: 065
  20. XANAX [Concomitant]
     Active Substance: ALPRAZOLAM
     Indication: Anxiety
     Route: 048
  21. ADVIL [Concomitant]
     Active Substance: IBUPROFEN
     Indication: Procedural pain
     Dosage: 400 MG TWICE A DAY
     Route: 065
  22. ANCIENT PROBIOTICS [Concomitant]
     Indication: Gastrointestinal disorder prophylaxis
     Dosage: ONE CAPSULE DAILY
     Route: 065
  23. CALCIPOTRIENE [Concomitant]
     Active Substance: CALCIPOTRIENE
     Indication: Psoriasis
     Dosage: TWICE A DAY
     Route: 065
  24. GABAP [Concomitant]
     Indication: Pain
     Dosage: THREE TIMES A DAY
     Route: 061
  25. BENZOCAINE [Concomitant]
     Indication: Pain
     Dosage: THREE TIMES DAILY
     Route: 061
  26. HYDROGEN PEROXIDE [Concomitant]
     Active Substance: HYDROGEN PEROXIDE
     Indication: Pain
     Dosage: THREE TIMES DAILY
     Route: 061
  27. DIETARY SUPPLEMENT [Concomitant]
     Active Substance: DIETARY SUPPLEMENT
     Indication: Gastrointestinal disorder prophylaxis
     Dosage: ONE CAPSULE DAILY
     Route: 065
  28. ACETAMINOPHEN\HYDROCODONE [Concomitant]
     Active Substance: ACETAMINOPHEN\HYDROCODONE
     Indication: Procedural pain
     Route: 065
  29. IPRATROPIUM [Concomitant]
     Active Substance: IPRATROPIUM
     Indication: Allergic sinusitis
     Dosage: THREE TIMES A DAY
     Route: 045
  30. LACTO ENZYMEDICA [Concomitant]
     Indication: Gastrointestinal disorder prophylaxis
     Dosage: DAILY
     Route: 065
  31. MORPHINE SULFATE [Concomitant]
     Active Substance: MORPHINE SULFATE
     Indication: Procedural pain
     Route: 065
  32. MUPIROCIN [Concomitant]
     Active Substance: MUPIROCIN
     Indication: Staphylococcal infection
     Dosage: 2% DAILY
     Route: 065
  33. ROBAXIN [Concomitant]
     Active Substance: METHOCARBAMOL
     Indication: Muscle spasms
     Route: 065
  34. SPECTRUM DIGESTIVE ENZYME [Concomitant]
     Indication: Gastrointestinal disorder prophylaxis
     Dosage: ONE CAPSULE DAILY
     Route: 065
  35. VITAMIN B12 [Concomitant]
     Active Substance: CYANOCOBALAMIN
     Indication: Hypovitaminosis
     Dosage: 1000 MCG WEEKLY
     Route: 065

REACTIONS (8)
  - Atrial fibrillation [Unknown]
  - Hospitalisation [Recovered/Resolved]
  - Fatigue [Recovered/Resolved]
  - Gastrointestinal microorganism overgrowth [Unknown]
  - Peripheral coldness [Not Recovered/Not Resolved]
  - Paraesthesia [Not Recovered/Not Resolved]
  - Nausea [Recovered/Resolved]
  - Product dose omission issue [Recovered/Resolved]

NARRATIVE: CASE EVENT DATE: 20250101
